FAERS Safety Report 8976615 (Version 1)
Quarter: 2012Q4

REPORT INFORMATION
  Report Type: 
  Country: KR (occurrence: KR)
  Receive Date: 20121220
  Receipt Date: 20121220
  Transmission Date: 20130627
  Serious: Yes (Other)
  Sender: FDA-Public Use
  Company Number: KR-PFIZER INC-2012319407

PATIENT
  Sex: Male

DRUGS (1)
  1. NEURONTIN [Suspect]
     Indication: NUMBNESS OF LIMBS
     Dosage: 200 mg, 3x/day
     Route: 048
     Dates: start: 20121211, end: 20121217

REACTIONS (2)
  - Rash generalised [Unknown]
  - Eosinophil count increased [Unknown]
